FAERS Safety Report 25565981 (Version 3)
Quarter: 2025Q3

REPORT INFORMATION
  Report Type: Spontaneous
  Country: US (occurrence: US)
  Receive Date: 20250716
  Receipt Date: 20250716
  Transmission Date: 20251020
  Serious: Yes (Other)
  Sender: NOVO NORDISK
  Company Number: US-NOVOPROD-1269482

PATIENT
  Age: 63 Year
  Sex: Male
  Weight: 107.9 kg

DRUGS (30)
  1. OZEMPIC [Suspect]
     Active Substance: SEMAGLUTIDE
     Indication: Type 2 diabetes mellitus
     Dosage: 1 MG, QW
     Dates: start: 20211201
  2. OZEMPIC [Suspect]
     Active Substance: SEMAGLUTIDE
     Dosage: 1 UNK
     Dates: end: 20230501
  3. OZEMPIC [Suspect]
     Active Substance: SEMAGLUTIDE
     Dosage: 1 MG, QW
     Dates: start: 202201, end: 202202
  4. TRULICITY [Suspect]
     Active Substance: DULAGLUTIDE
     Dosage: 1.5 MG, QW
     Dates: start: 202307, end: 202308
  5. TRULICITY [Suspect]
     Active Substance: DULAGLUTIDE
     Dosage: 1.5 MG, QW
     Dates: end: 20230801
  6. TRULICITY [Suspect]
     Active Substance: DULAGLUTIDE
     Dosage: 4.5 MG, QW
     Dates: start: 20220601, end: 20230101
  7. TRULICITY [Suspect]
     Active Substance: DULAGLUTIDE
     Dosage: 3 MG, QW
     Dates: start: 20200301
  8. TRULICITY [Suspect]
     Active Substance: DULAGLUTIDE
     Dosage: 1.5 MG, QW
     Dates: start: 202201, end: 202212
  9. TRULICITY [Suspect]
     Active Substance: DULAGLUTIDE
     Dosage: 1.5 MG, QW
     Dates: start: 202003, end: 202112
  10. TRULICITY [Suspect]
     Active Substance: DULAGLUTIDE
     Indication: Type 2 diabetes mellitus
     Dosage: 1.5 MG, QW
     Dates: start: 20180801
  11. TRULICITY [Suspect]
     Active Substance: DULAGLUTIDE
     Dosage: 3 MG, QW
     Dates: start: 20200312, end: 202112
  12. TRULICITY [Suspect]
     Active Substance: DULAGLUTIDE
     Dosage: 3 MG, QW
     Dates: start: 202202, end: 20220601
  13. OZEMPIC [Suspect]
     Active Substance: SEMAGLUTIDE
     Indication: Type 2 diabetes mellitus
     Dosage: 2 MG, QW
     Dates: start: 20230308
  14. OZEMPIC [Suspect]
     Active Substance: SEMAGLUTIDE
     Dosage: 2 MG, QW
     Dates: end: 20230601
  15. OZEMPIC [Suspect]
     Active Substance: SEMAGLUTIDE
  16. OZEMPIC [Suspect]
     Active Substance: SEMAGLUTIDE
     Dosage: 2 MG, QW
     Dates: start: 202305, end: 202306
  17. OZEMPIC [Suspect]
     Active Substance: SEMAGLUTIDE
     Dates: start: 20230315
  18. OZEMPIC [Suspect]
     Active Substance: SEMAGLUTIDE
     Dates: start: 202306, end: 202307
  19. OZEMPIC [Suspect]
     Active Substance: SEMAGLUTIDE
     Dates: end: 20230701
  20. OZEMPIC [Suspect]
     Active Substance: SEMAGLUTIDE
  21. OZEMPIC [Suspect]
     Active Substance: SEMAGLUTIDE
     Indication: Type 2 diabetes mellitus
     Dates: start: 20221001, end: 20230501
  22. VICTOZA [Suspect]
     Active Substance: LIRAGLUTIDE
     Indication: Type 2 diabetes mellitus
     Dates: start: 20130101, end: 20150101
  23. VICTOZA [Suspect]
     Active Substance: LIRAGLUTIDE
     Dosage: 1.8 MG, QW
     Dates: start: 20171001, end: 20180801
  24. NOVOLOG [Concomitant]
     Active Substance: INSULIN ASPART
     Indication: Type 2 diabetes mellitus
     Dates: start: 20130101
  25. BUPRENORPHINE [Concomitant]
     Active Substance: BUPRENORPHINE
     Indication: Pain
     Dates: start: 20190101
  26. CYCLOBENZAPRINE [Concomitant]
     Active Substance: CYCLOBENZAPRINE
     Indication: Hypotonia
     Dates: start: 20230101
  27. LISINOPRIL [Concomitant]
     Active Substance: LISINOPRIL
     Indication: Blood cholesterol increased
     Dates: start: 20160101
  28. GABAPENTIN [Concomitant]
     Active Substance: GABAPENTIN
     Indication: Seizure
     Dates: start: 20220501
  29. XIGDUO XR [Concomitant]
     Active Substance: DAPAGLIFLOZIN PROPANEDIOL\METFORMIN HYDROCHLORIDE
     Indication: Type 2 diabetes mellitus
     Dates: start: 20130101
  30. BASAGLAR [Concomitant]
     Active Substance: INSULIN GLARGINE
     Indication: Type 2 diabetes mellitus
     Dates: start: 20230101

REACTIONS (2)
  - Impaired gastric emptying [Not Recovered/Not Resolved]
  - Dyspepsia [Not Recovered/Not Resolved]

NARRATIVE: CASE EVENT DATE: 20230501
